FAERS Safety Report 5825598-8 (Version None)
Quarter: 2008Q3

REPORT INFORMATION
  Report Type: 
  Country: None (occurrence: None)
  Receive Date: 20080729
  Receipt Date: 20080722
  Transmission Date: 20090109
  Serious: Yes (Hospitalization)
  Sender: FDA-Public Use
  Company Number: A0738870A

PATIENT
  Age: 57 Year
  Sex: Female

DRUGS (10)
  1. LAMICTAL [Suspect]
     Indication: DEPRESSION
     Dosage: 200MG PER DAY
     Route: 048
  2. BIOTIN [Concomitant]
  3. RANITIDINE HCL [Concomitant]
  4. CLONAZEPAM [Concomitant]
  5. ZOLPIDEM [Concomitant]
  6. LEVOTHYROXINE SODIUM [Concomitant]
  7. ROPINIROLE [Concomitant]
  8. VIVELLE [Concomitant]
  9. CALCIUM [Concomitant]
  10. NEXIUM [Concomitant]

REACTIONS (4)
  - ANAEMIA [None]
  - BLOOD TEST ABNORMAL [None]
  - COELIAC DISEASE [None]
  - WEIGHT FLUCTUATION [None]
